FAERS Safety Report 6145492-5 (Version None)
Quarter: 2009Q2

REPORT INFORMATION
  Report Type: 
  Country: None (occurrence: None)
  Receive Date: 20090406
  Receipt Date: 20090326
  Transmission Date: 20091009
  Serious: Yes (Death)
  Sender: FDA-Public Use
  Company Number: AU-PFIZER INC-2009189770

PATIENT

DRUGS (2)
  1. ZIPRASIDONE HCL [Suspect]
  2. HEROIN [Interacting]

REACTIONS (2)
  - DRUG INTERACTION [None]
  - ELECTROCARDIOGRAM QT PROLONGED [None]
